FAERS Safety Report 8170639-9 (Version None)
Quarter: 2012Q1

REPORT INFORMATION
  Report Type: 
  Country: None (occurrence: None)
  Receive Date: 20120104
  Receipt Date: 20111010
  Transmission Date: 20120608
  Serious: No
  Sender: FDA-Public Use
  Company Number: 2011HGS-002625

PATIENT
  Age: 41 Year
  Sex: Female
  Weight: 78.0187 kg

DRUGS (10)
  1. LEXAPRO [Concomitant]
  2. VITAMIN D [Concomitant]
  3. PLAQUENIL [Concomitant]
  4. NIFEDIAC XR (NIFEDIPINE) [Concomitant]
  5. AMITRIPTYLINE HCL [Concomitant]
  6. FLEXERIL [Concomitant]
  7. BENLYSTA [Suspect]
     Indication: SYSTEMIC LUPUS ERYTHEMATOSUS
     Dosage: 1 IN 2 WK, INTRAVENOUS DRIP
     Route: 041
     Dates: start: 20110808
  8. CLONAZEPAM [Concomitant]
  9. AMBIEN CR [Concomitant]
  10. PERCOCET (OXYCOCET) (PARACETAMOL, OXYCODONE HYDROCHLORIDE) [Concomitant]

REACTIONS (7)
  - NASAL CONGESTION [None]
  - ANXIETY [None]
  - SYSTEMIC LUPUS ERYTHEMATOSUS [None]
  - FATIGUE [None]
  - ARTHRALGIA [None]
  - NAUSEA [None]
  - INFLUENZA LIKE ILLNESS [None]
